FAERS Safety Report 8230280-6 (Version None)
Quarter: 2012Q1

REPORT INFORMATION
  Report Type: 
  Country: None (occurrence: None)
  Receive Date: 20120307
  Receipt Date: 20090917
  Transmission Date: 20120608
  Serious: Yes (Other)
  Sender: FDA-Public Use
  Company Number: PHEH2009US11138

PATIENT
  Sex: Female

DRUGS (1)
  1. AFINITOR [Suspect]
     Indication: RENAL CANCER METASTATIC
     Dosage: 10 MG, QD

REACTIONS (6)
  - PYREXIA [None]
  - RESPIRATORY DISTRESS [None]
  - PNEUMONITIS [None]
  - RESPIRATORY DISORDER [None]
  - RALES [None]
  - PULMONARY CONGESTION [None]
